FAERS Safety Report 5369248-6 (Version None)
Quarter: 2007Q2

REPORT INFORMATION
  Report Type: 
  Country: None (occurrence: None)
  Receive Date: 20070625
  Receipt Date: 20070221
  Transmission Date: 20071010
  Serious: Yes (Other)
  Sender: FDA-Public Use
  Company Number: US-ASTRAZENECA-2007UW03471

PATIENT
  Sex: Male

DRUGS (4)
  1. CRESTOR [Suspect]
     Route: 048
  2. LISINOPRIL WITH HYDROCHLOROTHIAZIDE [Concomitant]
  3. NEXIUM [Concomitant]
  4. FOLIC ACID [Concomitant]

REACTIONS (1)
  - PANCREATITIS [None]
